FAERS Safety Report 21897210 (Version 1)
Quarter: 2023Q1

REPORT INFORMATION
  Report Type: Spontaneous
  Country: US (occurrence: None)
  Receive Date: 20230121
  Receipt Date: 20230121
  Transmission Date: 20230417
  Serious: Yes (Other)
  Sender: FDA-Public Use
  Company Number: None

PATIENT
  Age: 70 Year
  Sex: Male
  Weight: 96.75 kg

DRUGS (8)
  1. CANNABIDIOL\HERBALS [Suspect]
     Active Substance: CANNABIDIOL\HERBALS
     Indication: Arthralgia
     Route: 048
     Dates: start: 20230119, end: 20230119
  2. Irbesartan/Hct 300/12.5 once daily [Concomitant]
  3. Celebrex 200 mg once daily [Concomitant]
  4. Rosuvastatin 5 mg once daily [Concomitant]
  5. ELIQUIS [Concomitant]
  6. TYLENOL [Concomitant]
  7. COLACE [Concomitant]
  8. Zyrtec [Concomitant]

REACTIONS (3)
  - Palpitations [None]
  - Ventricular extrasystoles [None]
  - Extrasystoles [None]

NARRATIVE: CASE EVENT DATE: 20230119
